FAERS Safety Report 13246117 (Version 1)
Quarter: 2017Q1

REPORT INFORMATION
  Report Type: Spontaneous
  Country: US (occurrence: US)
  Receive Date: 20170217
  Receipt Date: 20170217
  Transmission Date: 20170428
  Serious: Yes (Hospitalization)
  Sender: FDA-Public Use
  Company Number: US-WEST-WARD PHARMACEUTICALS CORP.-US-H14001-17-00350

PATIENT
  Age: 6 Day
  Sex: Male

DRUGS (1)
  1. HYDROMORPHONE [Suspect]
     Active Substance: HYDROMORPHONE
     Indication: PROCEDURAL PAIN
     Route: 063

REACTIONS (7)
  - Intoxication by breast feeding [Recovered/Resolved]
  - Urine output decreased [Unknown]
  - Lethargy [Unknown]
  - Bradycardia neonatal [Unknown]
  - Neonatal respiratory arrest [Recovered/Resolved]
  - Infantile apnoea [Recovered/Resolved]
  - Hypophagia [Unknown]
